FAERS Safety Report 9524332 (Version 1)
Quarter: 2013Q3

REPORT INFORMATION
  Report Type: Spontaneous
  Country: US (occurrence: US)
  Receive Date: 20130916
  Receipt Date: 20130916
  Transmission Date: 20140515
  Serious: No
  Sender: FDA-Public Use
  Company Number: US-BAYER-2013-111295

PATIENT
  Sex: Male

DRUGS (1)
  1. ALEVE TABLET [Suspect]
     Dosage: 1 DF, BID
     Route: 048
     Dates: start: 20130911

REACTIONS (3)
  - Rash [None]
  - Pruritus [None]
  - Urticaria [None]
